FAERS Safety Report 5801586-2 (Version None)
Quarter: 2008Q3

REPORT INFORMATION
  Report Type: 
  Country: None (occurrence: None)
  Receive Date: 20080703
  Receipt Date: 20080703
  Transmission Date: 20090109
  Serious: Yes (Life-Threatening)
  Sender: FDA-Public Use
  Company Number: None

PATIENT
  Age: 25 Year
  Sex: Female
  Weight: 43 kg

DRUGS (2)
  1. INFLEXIMAB [Suspect]
     Indication: RHEUMATOID ARTHRITIS
     Dosage: 3MG/KG/BODY WIGHT 0-2-AND EVRY 6WEEK IV DRIP
     Route: 041
     Dates: start: 20070501, end: 20080401
  2. METHOTREXATE [Suspect]
     Dosage: 25MG WEEKLY PO
     Route: 048
     Dates: start: 20060101, end: 20080101

REACTIONS (10)
  - ANOREXIA [None]
  - ARTHRALGIA [None]
  - BONE DISORDER [None]
  - FATIGUE [None]
  - LYMPHADENOPATHY [None]
  - MASS [None]
  - NO THERAPEUTIC RESPONSE [None]
  - SOFT TISSUE DISORDER [None]
  - SWELLING [None]
  - WEIGHT DECREASED [None]
